FAERS Safety Report 7308610 (Version 3)
Quarter: 2012Q4

REPORT INFORMATION
  Report Type: 
  Country: CN (occurrence: CN)
  Receive Date: 20100308
  Receipt Date: 20121214
  Transmission Date: 20130627
  Serious: Yes (Other)
  Sender: FDA-Public Use
  Company Number: PHHY2010CN10750

PATIENT
  Sex: Female

DRUGS (2)
  1. TRILEPTAL [Suspect]
     Indication: TEMPORAL LOBE EPILEPSY
     Dosage: 0.6 g, BID
     Route: 048
  2. LEVETIRACETAM [Concomitant]
     Dosage: UNK UKN, UNK

REACTIONS (2)
  - Menstrual disorder [Recovered/Resolved]
  - Oligomenorrhoea [Recovered/Resolved]
